FAERS Safety Report 7226434-8 (Version None)
Quarter: 2010Q4

REPORT INFORMATION
  Report Type: 
  Country: None (occurrence: None)
  Receive Date: 20101126
  Receipt Date: 20100818
  Transmission Date: 20110411
  Serious: No
  Sender: FDA-Public Use
  Company Number: 314552

PATIENT
  Age: 43 Year
  Sex: Female

DRUGS (1)
  1. VICTOZA [Suspect]
     Indication: PRODUCT USED FOR UNKNOWN INDICATION
     Dosage: 0.6, SUBCUTANEOUS
     Route: 058
     Dates: start: 20100817

REACTIONS (2)
  - DYSMENORRHOEA [None]
  - VAGINAL HAEMORRHAGE [None]
